FAERS Safety Report 9265387 (Version 1)
Quarter: 2013Q2

REPORT INFORMATION
  Report Type: Spontaneous
  Country: US (occurrence: US)
  Receive Date: 20130501
  Receipt Date: 20130501
  Transmission Date: 20140414
  Serious: No
  Sender: FDA-Public Use
  Company Number: US-ASTRAZENECA-2013SE25795

PATIENT
  Age: 50 Year
  Sex: Male

DRUGS (4)
  1. SYMBICORT [Suspect]
     Indication: ASTHMA
     Dosage: 320 MCG, BID
     Route: 055
  2. SYMBICORT [Suspect]
     Indication: BRONCHIAL DISORDER
     Dosage: 320 MCG, BID
     Route: 055
  3. SYMBICORT [Suspect]
     Indication: ASTHMA
     Dosage: 160/4.5 MCG, 2 PUFFS, BID
     Route: 055
  4. SYMBICORT [Suspect]
     Indication: BRONCHIAL DISORDER
     Dosage: 160/4.5 MCG, 2 PUFFS, BID
     Route: 055

REACTIONS (1)
  - Back pain [Recovered/Resolved]
